FAERS Safety Report 6042012-0 (Version None)
Quarter: 2009Q1

REPORT INFORMATION
  Report Type: 
  Country: None (occurrence: None)
  Receive Date: 20090116
  Receipt Date: 20090109
  Transmission Date: 20090719
  Serious: Yes (Hospitalization, Other)
  Sender: FDA-Public Use
  Company Number: US-MERCK-0807USA03750

PATIENT
  Age: 56 Year
  Sex: Male
  Weight: 84 kg

DRUGS (7)
  1. FOSAMAX [Suspect]
     Indication: OSTEOPOROSIS
     Route: 048
     Dates: start: 20010101, end: 20010101
  2. FOSAMAX [Suspect]
     Route: 048
     Dates: start: 20010101, end: 20010322
  3. [THERAPY UNSPECIFIED] [Concomitant]
     Indication: DIABETES MELLITUS
     Route: 065
     Dates: start: 19980101
  4. AREDIA [Concomitant]
     Indication: OSTEOPOROSIS
     Route: 065
     Dates: start: 20010101, end: 20020101
  5. MIACALCIN [Concomitant]
     Indication: OSTEOPOROSIS
     Dates: start: 20010101, end: 20010322
  6. CALCIUM (UNSPECIFIED) [Concomitant]
     Indication: OSTEOPOROSIS
     Route: 065
     Dates: start: 20010101
  7. PERCOCET [Concomitant]
     Route: 065
     Dates: start: 19960101, end: 20040101

REACTIONS (24)
  - ADVERSE DRUG REACTION [None]
  - BLADDER CANCER [None]
  - BONE PAIN [None]
  - DIABETES MELLITUS INADEQUATE CONTROL [None]
  - DIABETIC GASTROPARESIS [None]
  - DRUG ADMINISTRATION ERROR [None]
  - DRUG HYPERSENSITIVITY [None]
  - GALLBLADDER DISORDER [None]
  - GASTRODUODENITIS [None]
  - GASTROOESOPHAGEAL REFLUX DISEASE [None]
  - HYPERTENSION [None]
  - JAW DISORDER [None]
  - MYOCARDIAL INFARCTION [None]
  - NEUROPATHY PERIPHERAL [None]
  - OSTEOMYELITIS [None]
  - OSTEONECROSIS [None]
  - OVERDOSE [None]
  - PAIN OF SKIN [None]
  - PERONEAL NERVE PALSY [None]
  - PROCEDURAL COMPLICATION [None]
  - SINUS DISORDER [None]
  - SOMNOLENCE [None]
  - TOOTH DISORDER [None]
  - WITHDRAWAL SYNDROME [None]
